FAERS Safety Report 20787337 (Version 4)
Quarter: 2022Q2

REPORT INFORMATION
  Report Type: Spontaneous
  Country: GB (occurrence: GB)
  Receive Date: 20220505
  Receipt Date: 20220628
  Transmission Date: 20220721
  Serious: Yes (Other)
  Sender: FDA-Public Use
  Company Number: GB-CELGENE-GBR-20181102149

PATIENT
  Age: 86 Year
  Sex: Female

DRUGS (28)
  1. DEXAMETHASONE [Suspect]
     Active Substance: DEXAMETHASONE
     Indication: Plasma cell myeloma
     Dosage: UNK
     Route: 065
     Dates: start: 20190318, end: 20220106
  2. DEXAMETHASONE [Suspect]
     Active Substance: DEXAMETHASONE
     Dosage: UNK
     Route: 065
     Dates: start: 20181029
  3. DEXAMETHASONE [Suspect]
     Active Substance: DEXAMETHASONE
     Dosage: UNK
     Route: 065
     Dates: start: 20180216, end: 20190305
  4. DEXAMETHASONE [Suspect]
     Active Substance: DEXAMETHASONE
     Dosage: UNK
     Route: 065
     Dates: start: 20190216, end: 20190305
  5. REVLIMID [Suspect]
     Active Substance: LENALIDOMIDE
     Indication: Plasma cell myeloma
     Dosage: 10 MILLIGRAM
     Route: 048
     Dates: start: 20180216, end: 20190305
  6. REVLIMID [Suspect]
     Active Substance: LENALIDOMIDE
     Dosage: 10 MILLIGRAM
     Route: 048
     Dates: start: 20190318
  7. REVLIMID [Suspect]
     Active Substance: LENALIDOMIDE
     Dosage: FREQUENCY TEXT: NOT PROVIDED
     Route: 048
     Dates: start: 20181029
  8. REVLIMID [Suspect]
     Active Substance: LENALIDOMIDE
     Route: 048
     Dates: end: 20220106
  9. AMITRIPTYLINE [Suspect]
     Active Substance: AMITRIPTYLINE
     Indication: Product used for unknown indication
     Dosage: UNK
     Route: 065
     Dates: end: 20220106
  10. IXAZOMIB [Suspect]
     Active Substance: IXAZOMIB
     Indication: Plasma cell myeloma
     Dosage: 4 MILLIGRAM
     Route: 048
     Dates: start: 20170327
  11. IXAZOMIB [Suspect]
     Active Substance: IXAZOMIB
     Dosage: 4 MILLIGRAM
     Route: 048
     Dates: start: 20181001, end: 20181015
  12. IXAZOMIB [Suspect]
     Active Substance: IXAZOMIB
     Dosage: 3 MILLIGRAM
     Route: 048
     Dates: start: 20190119
  13. IXAZOMIB [Suspect]
     Active Substance: IXAZOMIB
     Dosage: 4 MILLIGRAM
     Route: 048
     Dates: start: 20190318, end: 20211208
  14. IXAZOMIB [Suspect]
     Active Substance: IXAZOMIB
     Dosage: 4 MILLIGRAM
     Route: 065
     Dates: end: 20220106
  15. IXAZOMIB [Suspect]
     Active Substance: IXAZOMIB
     Dosage: 3 MILLIGRAM
     Route: 048
     Dates: start: 20190216, end: 20190305
  16. IXAZOMIB [Suspect]
     Active Substance: IXAZOMIB
     Dosage: 3 MILLIGRAM
     Route: 048
     Dates: start: 20190121
  17. IXAZOMIB [Suspect]
     Active Substance: IXAZOMIB
     Route: 048
     Dates: start: 20181029
  18. NINLARO [Suspect]
     Active Substance: IXAZOMIB CITRATE
     Indication: Plasma cell myeloma
     Dosage: FREQUENCY TEXT: ON DAYS 1, 8 AND 15 OF A 28?4 MILLIGRAM
     Route: 048
     Dates: start: 20181001, end: 20181015
  19. NINLARO [Suspect]
     Active Substance: IXAZOMIB CITRATE
     Dosage: FREQUENCY TEXT: DAY 1,8 AND 15 OF 28 DAYS CYCLE
     Route: 048
     Dates: start: 20190119
  20. NINLARO [Suspect]
     Active Substance: IXAZOMIB CITRATE
     Dosage: FREQUENCY TEXT: DAY1,8 AND 15 OF 28DAYS
     Route: 048
     Dates: start: 20190121
  21. NINLARO [Suspect]
     Active Substance: IXAZOMIB CITRATE
     Dosage: FREQUENCY TEXT: DAY1,8 AND 15DAYS OF 28CYCLE?3 MILLIGRAM
     Route: 048
     Dates: start: 20190216, end: 20190305
  22. NINLARO [Suspect]
     Active Substance: IXAZOMIB CITRATE
     Dosage: FREQUENCY TEXT: DAY 1,8 AND 15 OF 28 DAYS CYCLE?4 MILLIGRAM
     Route: 048
     Dates: start: 20181001, end: 20181015
  23. NINLARO [Suspect]
     Active Substance: IXAZOMIB CITRATE
     Dosage: FREQUENCY TEXT: DAY 1,8,AND 15 OF 28DAYS?4 MILLIGRAM
     Route: 048
     Dates: start: 20190318, end: 20211208
  24. NINLARO [Suspect]
     Active Substance: IXAZOMIB CITRATE
     Dosage: FREQUENCY TEXT: DAY 1, 8 AND 15 OF 28 DAYS?4 MILLIGRAM
     Route: 048
     Dates: start: 20170327
  25. NINLARO [Suspect]
     Active Substance: IXAZOMIB CITRATE
     Dosage: FREQUENCY TEXT: NOT PROVIDED
     Route: 048
     Dates: start: 20181029
  26. NINLARO [Suspect]
     Active Substance: IXAZOMIB CITRATE
     Dosage: FREQUENCY TEXT: NOT PROVIDED
     Route: 048
  27. NINLARO [Suspect]
     Active Substance: IXAZOMIB CITRATE
     Dosage: FREQUENCY TEXT: NOT PROVIDED
     Route: 048
  28. TINZAPARIN [Concomitant]
     Active Substance: TINZAPARIN
     Indication: Product used for unknown indication
     Dosage: FREQUENCY TEXT: NOT PROVIDED
     Route: 058

REACTIONS (9)
  - SARS-CoV-2 test positive [Recovering/Resolving]
  - Trigeminal neuralgia [Not Recovered/Not Resolved]
  - Neutrophil count decreased [Unknown]
  - Back pain [Recovered/Resolved]
  - Creatinine renal clearance decreased [Unknown]
  - Varicophlebitis [Unknown]
  - Lower respiratory tract infection [Unknown]
  - Diarrhoea [Recovered/Resolved]
  - Cough [Not Recovered/Not Resolved]

NARRATIVE: CASE EVENT DATE: 20180216
